FAERS Safety Report 5858326-0 (Version None)
Quarter: 2008Q3

REPORT INFORMATION
  Report Type: 
  Country: None (occurrence: None)
  Receive Date: 20080826
  Receipt Date: 20080822
  Transmission Date: 20090109
  Serious: Yes (Hospitalization)
  Sender: FDA-Public Use
  Company Number: GB-TEVA-175910ISR

PATIENT
  Sex: Male

DRUGS (2)
  1. SERTRALINE [Suspect]
  2. ATORVASTATIN [Suspect]

REACTIONS (1)
  - GASTRIC BYPASS [None]
